FAERS Safety Report 8079761-9 (Version None)
Quarter: 2012Q1

REPORT INFORMATION
  Report Type: 
  Country: None (occurrence: None)
  Receive Date: 20120128
  Receipt Date: 20110718
  Transmission Date: 20120608
  Serious: No
  Sender: FDA-Public Use
  Company Number: US-ABBOTT-11P-163-0840445-00

PATIENT
  Sex: Female
  Weight: 98.064 kg

DRUGS (12)
  1. FISH OIL [Concomitant]
     Indication: VITAMIN SUPPLEMENTATION
  2. HUMIRA [Suspect]
     Indication: RHEUMATOID ARTHRITIS
     Dates: start: 20110610, end: 20110610
  3. CALCIUM [Concomitant]
     Indication: MINERAL SUPPLEMENTATION
  4. CARDIZEM [Concomitant]
     Indication: HYPERTENSION
  5. HUMIRA [Suspect]
     Indication: CROHN'S DISEASE
     Dosage: LOADING DOSE
     Dates: start: 20110624, end: 20110624
  6. HUMIRA [Suspect]
  7. VITAMIN TAB [Concomitant]
     Indication: VITAMIN SUPPLEMENTATION
  8. LIALDA [Concomitant]
     Indication: CROHN'S DISEASE
  9. SYNTHROID [Concomitant]
     Indication: HYPOTHYROIDISM
  10. HUMIRA [Suspect]
     Dates: start: 20110708, end: 20110708
  11. ASPIRIN [Concomitant]
     Indication: CARDIAC DISORDER
  12. UNKNOWN CHOLESTEROL MEDICATION [Concomitant]
     Indication: BLOOD CHOLESTEROL INCREASED

REACTIONS (4)
  - DRUG ADMINISTRATION ERROR [None]
  - VAGINAL HAEMORRHAGE [None]
  - EPISTAXIS [None]
  - CONTUSION [None]
